FAERS Safety Report 9319641 (Version 5)
Quarter: 2015Q1

REPORT INFORMATION
  Report Type: Spontaneous
  Country: US (occurrence: US)
  Receive Date: 20130530
  Receipt Date: 20150311
  Transmission Date: 20150721
  Serious: No
  Sender: FDA-Public Use
  Company Number: US-GLAXOSMITHKLINE-A1018095A

PATIENT
  Sex: Female
  Weight: 66.4 kg

DRUGS (9)
  1. COUMADIN [Concomitant]
     Active Substance: WARFARIN SODIUM
  2. LETAIRIS [Concomitant]
     Active Substance: AMBRISENTAN
  3. POTASSIUM [Concomitant]
     Active Substance: POTASSIUM
  4. FLOLAN [Suspect]
     Active Substance: EPOPROSTENOL SODIUM
     Dates: start: 20130308
  5. FLOLAN [Suspect]
     Active Substance: EPOPROSTENOL SODIUM
     Dates: start: 20130308
  6. ADCIRCA [Concomitant]
     Active Substance: TADALAFIL
  7. LASIX [Concomitant]
     Active Substance: FUROSEMIDE
  8. PLAQUENIL [Concomitant]
     Active Substance: HYDROXYCHLOROQUINE SULFATE
  9. FLOLAN [Suspect]
     Active Substance: EPOPROSTENOL SODIUM
     Indication: COR PULMONALE CHRONIC
     Dosage: 5 NG/KG/MINUTE CONTINOUSLY12 NG/KG/MINUTE CONCENTRATION 15,000 NG/ML PUMP RATE 76 ML/DAY VIAL S[...]
     Route: 042
     Dates: start: 20130308

REACTIONS (13)
  - Skin irritation [Unknown]
  - Infusion site pruritus [Recovered/Resolved]
  - Swelling face [Recovering/Resolving]
  - Nasal discharge discolouration [Recovering/Resolving]
  - Paranasal sinus discomfort [Recovering/Resolving]
  - Application site papules [Unknown]
  - Muscle spasms [Recovering/Resolving]
  - Peripheral swelling [Recovering/Resolving]
  - Catheter site haemorrhage [Recovering/Resolving]
  - Infusion site pain [Unknown]
  - Limb discomfort [Recovering/Resolving]
  - Nasal congestion [Recovering/Resolving]
  - Catheter site erythema [Unknown]
